FAERS Safety Report 6196218-0 (Version None)
Quarter: 2009Q2

REPORT INFORMATION
  Report Type: 
  Country: None (occurrence: None)
  Receive Date: 20090520
  Receipt Date: 20090514
  Transmission Date: 20091009
  Serious: Yes (Hospitalization, Other)
  Sender: FDA-Public Use
  Company Number: US-AVENTIS-200716003US

PATIENT
  Sex: Female

DRUGS (7)
  1. KETEK [Suspect]
     Indication: SINUSITIS
     Dosage: DOSE: UNK
     Route: 048
     Dates: start: 20050805
  2. AUGMENTIN '125' [Concomitant]
     Dosage: DOSE: UNK
  3. ADVIL [Concomitant]
     Dosage: DOSE: UNK
  4. NEXIUM [Concomitant]
     Dosage: DOSE: UNK
  5. PRILOSEC [Concomitant]
     Dosage: DOSE: UNK
  6. FLONASE [Concomitant]
  7. AMOXICILLIN + CLAVULANATE POTASSIUM [Concomitant]
     Dates: start: 20050915

REACTIONS (59)
  - ABDOMINAL DISTENSION [None]
  - ABDOMINAL TENDERNESS [None]
  - ALOPECIA [None]
  - ANOREXIA [None]
  - ANTIBODY TEST POSITIVE [None]
  - ARTHRALGIA [None]
  - AUTOIMMUNE HEPATITIS [None]
  - BASAL CELL CARCINOMA [None]
  - BLOOD AMYLASE INCREASED [None]
  - BLOOD BILIRUBIN INCREASED [None]
  - BLOOD GLUCOSE INCREASED [None]
  - BURNING SENSATION [None]
  - CARPAL TUNNEL SYNDROME [None]
  - CHOLECYSTITIS [None]
  - CHOLELITHIASIS [None]
  - CHROMATURIA [None]
  - CHRONIC HEPATITIS [None]
  - DEPRESSION [None]
  - DIABETES MELLITUS [None]
  - FATIGUE [None]
  - FEELING JITTERY [None]
  - FLUID RETENTION [None]
  - GALLBLADDER DISORDER [None]
  - HAIR GROWTH ABNORMAL [None]
  - HEPATIC STEATOSIS [None]
  - HEPATITIS [None]
  - HEPATOMEGALY [None]
  - HEPATOTOXICITY [None]
  - HYPOAESTHESIA [None]
  - HYPONATRAEMIA [None]
  - INFLUENZA LIKE ILLNESS [None]
  - INGROWING NAIL [None]
  - INSOMNIA [None]
  - JAUNDICE [None]
  - JUVENILE ARTHRITIS [None]
  - LABORATORY TEST ABNORMAL [None]
  - LIPASE INCREASED [None]
  - LIVER DISORDER [None]
  - LIVER FUNCTION TEST ABNORMAL [None]
  - MURPHY'S SIGN POSITIVE [None]
  - MYALGIA [None]
  - NAUSEA [None]
  - ONYCHOMYCOSIS [None]
  - OSTEOPENIA [None]
  - PANCREATITIS ACUTE [None]
  - PANCREATOBILIARY SPHINCTEROTOMY [None]
  - PARAESTHESIA [None]
  - POLYARTHRITIS [None]
  - PRURITUS [None]
  - PYREXIA [None]
  - RESORPTION BONE INCREASED [None]
  - RHEUMATOID ARTHRITIS [None]
  - SKIN CANCER [None]
  - SLEEP APNOEA SYNDROME [None]
  - SWELLING FACE [None]
  - URINARY TRACT INFECTION [None]
  - VARICES OESOPHAGEAL [None]
  - VOMITING [None]
  - WEIGHT DECREASED [None]
